FAERS Safety Report 8370474-2 (Version None)
Quarter: 2012Q2

REPORT INFORMATION
  Report Type: 
  Country: None (occurrence: None)
  Receive Date: 20120518
  Receipt Date: 20120510
  Transmission Date: 20120825
  Serious: Yes (Hospitalization, Other)
  Sender: FDA-Public Use
  Company Number: PHHY2012FR040667

PATIENT
  Age: 13 Year
  Sex: Female

DRUGS (1)
  1. RITALIN [Suspect]
     Indication: ATTENTION DEFICIT/HYPERACTIVITY DISORDER
     Dosage: 20 MG, DAILY
     Route: 048

REACTIONS (6)
  - DELIRIUM [None]
  - MEMORY IMPAIRMENT [None]
  - BIPOLAR DISORDER [None]
  - DEPERSONALISATION [None]
  - MANIA [None]
  - DEPRESSION [None]
